FAERS Safety Report 9746230 (Version 2)
Quarter: 2013Q4

REPORT INFORMATION
  Report Type: Spontaneous
  Country: US (occurrence: US)
  Receive Date: 20131211
  Receipt Date: 20131218
  Transmission Date: 20140711
  Serious: Yes (Other)
  Sender: FDA-Public Use
  Company Number: US-PFIZER INC-2013349479

PATIENT
  Age: 83 Year
  Sex: Female
  Weight: 36.28 kg

DRUGS (4)
  1. ADVIL [Suspect]
     Indication: NEUROPATHY PERIPHERAL
     Dosage: UNK, AS NEEDED
  2. ADVIL [Suspect]
     Indication: PROPHYLAXIS
  3. XALATAN [Concomitant]
     Dosage: UNK
  4. BETOPTIC [Concomitant]
     Dosage: UNK

REACTIONS (3)
  - Cerebrovascular disorder [Unknown]
  - Angiopathy [Unknown]
  - Off label use [Unknown]
